FAERS Safety Report 13425502 (Version 1)
Quarter: 2017Q2

REPORT INFORMATION
  Report Type: Spontaneous
  Country: US (occurrence: US)
  Receive Date: 20170411
  Receipt Date: 20170411
  Transmission Date: 20170830
  Serious: No
  Sender: FDA-Public Use
  Company Number: US-009507513-1704USA003296

PATIENT
  Age: 16 Year
  Sex: Female
  Weight: 104.76 kg

DRUGS (1)
  1. NEXPLANON [Suspect]
     Active Substance: ETONOGESTREL
     Dosage: 1 DF, PER THREE YEARS
     Route: 059
     Dates: start: 20150605

REACTIONS (2)
  - No adverse event [Unknown]
  - Device breakage [Not Recovered/Not Resolved]
